FAERS Safety Report 19570953 (Version 1)
Quarter: 2021Q3

REPORT INFORMATION
  Report Type: Other
  Country: US (occurrence: US)
  Receive Date: 20210716
  Receipt Date: 20210716
  Transmission Date: 20211014
  Serious: No
  Sender: FDA-Public Use
  Company Number: US-UROVANT SCIENCES GMBH-202106-URV-000219

PATIENT
  Sex: Male
  Weight: 68.03 kg

DRUGS (1)
  1. GEMTESA [Suspect]
     Active Substance: VIBEGRON
     Indication: HYPERTONIC BLADDER
     Dosage: 75 MG, QD
     Route: 048

REACTIONS (1)
  - Drug ineffective [Unknown]
